FAERS Safety Report 7392030-5 (Version None)
Quarter: 2011Q2

REPORT INFORMATION
  Report Type: 
  Country: None (occurrence: None)
  Receive Date: 20110404
  Receipt Date: 20110401
  Transmission Date: 20111010
  Serious: Yes (Other)
  Sender: FDA-Public Use
  Company Number: A0921037A

PATIENT
  Age: 63 Year
  Sex: Female

DRUGS (1)
  1. ALLI [Suspect]
     Indication: WEIGHT LOSS DIET
     Route: 048
     Dates: end: 20110330

REACTIONS (3)
  - BLOOD URINE PRESENT [None]
  - RENAL PAIN [None]
  - INTESTINAL OBSTRUCTION [None]
